FAERS Safety Report 8425718-5 (Version None)
Quarter: 2012Q2

REPORT INFORMATION
  Report Type: 
  Country: None (occurrence: None)
  Receive Date: 20120611
  Receipt Date: 20120607
  Transmission Date: 20120825
  Serious: Yes (Death)
  Sender: FDA-Public Use
  Company Number: PHEH2012US011586

PATIENT
  Sex: Male

DRUGS (1)
  1. MYFORTIC [Suspect]
     Dosage: 360 MG, BID
     Route: 048
     Dates: start: 20100924, end: 20120515

REACTIONS (1)
  - DEATH [None]
